FAERS Safety Report 6217257-7 (Version None)
Quarter: 2009Q2

REPORT INFORMATION
  Report Type: 
  Country: None (occurrence: None)
  Receive Date: 20090604
  Receipt Date: 20090604
  Transmission Date: 20091009
  Serious: Yes (Other)
  Sender: FDA-Public Use
  Company Number: None

PATIENT
  Sex: Female
  Weight: 86.1834 kg

DRUGS (1)
  1. ENALAPRIL MALEATE [Suspect]
     Indication: HYPERTENSION
     Dates: start: 20080731

REACTIONS (3)
  - BLOOD PRESSURE INCREASED [None]
  - DRUG HYPERSENSITIVITY [None]
  - URINARY INCONTINENCE [None]
